FAERS Safety Report 10641028 (Version 5)
Quarter: 2016Q1

REPORT INFORMATION
  Report Type: Report from Study
  Country: US (occurrence: US)
  Receive Date: 20141209
  Receipt Date: 20160210
  Transmission Date: 20160525
  Serious: Yes (Hospitalization, Other)
  Sender: FDA-Public Use
  Company Number: US-ALEXION-A201404618

PATIENT
  Age: 73 Year
  Sex: Male

DRUGS (1)
  1. SOLIRIS [Suspect]
     Active Substance: ECULIZUMAB
     Indication: PAROXYSMAL NOCTURNAL HAEMOGLOBINURIA
     Dosage: 900 MG, Q2W
     Route: 042
     Dates: start: 20121113

REACTIONS (14)
  - Haemorrhage [Recovering/Resolving]
  - Sinusitis [Not Recovered/Not Resolved]
  - Cough [Recovered/Resolved]
  - Nephrolithiasis [Recovered/Resolved]
  - Pleural effusion [Not Recovered/Not Resolved]
  - Bladder cancer [Recovered/Resolved]
  - Nasal congestion [Unknown]
  - Deep vein thrombosis [Recovered/Resolved]
  - Poor venous access [Unknown]
  - Nasopharyngitis [Unknown]
  - Adverse event [Unknown]
  - Asthenia [Not Recovered/Not Resolved]
  - Haemoglobin decreased [Not Recovered/Not Resolved]
  - Haemoglobin decreased [Unknown]

NARRATIVE: CASE EVENT DATE: 20141202
